FAERS Safety Report 7684259-3 (Version None)
Quarter: 2011Q3

REPORT INFORMATION
  Report Type: 
  Country: None (occurrence: None)
  Receive Date: 20110815
  Receipt Date: 20110803
  Transmission Date: 20111222
  Serious: Yes (Death, Hospitalization)
  Sender: FDA-Public Use
  Company Number: IT-CELGENEUS-083-50794-11062149

PATIENT
  Sex: Female

DRUGS (11)
  1. PREDNISONE [Concomitant]
     Route: 048
     Dates: end: 20101101
  2. PREDNISONE [Concomitant]
     Route: 048
     Dates: start: 20101101, end: 20110101
  3. RED BLOOD CELLS [Concomitant]
     Route: 065
     Dates: start: 20110419, end: 20110419
  4. CARVEDILOL [Concomitant]
     Indication: ATRIAL FIBRILLATION
     Route: 065
  5. ONCO-CARBIDE [Concomitant]
     Route: 048
     Dates: start: 20110301, end: 20110401
  6. ONCO-CARBIDE [Concomitant]
     Route: 048
     Dates: end: 20110301
  7. RED BLOOD CELLS [Concomitant]
     Route: 065
     Dates: start: 20110422, end: 20110422
  8. VIDAZA [Suspect]
     Route: 041
     Dates: start: 20110505, end: 20110513
  9. COUMADIN [Concomitant]
     Indication: ATRIAL FIBRILLATION
     Route: 065
  10. RED BLOOD CELLS [Concomitant]
     Route: 065
     Dates: start: 20110501, end: 20110501
  11. PLATELETS [Concomitant]
     Route: 041

REACTIONS (6)
  - CHRONIC MYELOID LEUKAEMIA [None]
  - CONFUSIONAL STATE [None]
  - INFECTION [None]
  - HYPERTHERMIA [None]
  - FALL [None]
  - INTRACRANIAL HAEMATOMA [None]
